FAERS Safety Report 4289398-5 (Version None)
Quarter: 2004Q1

REPORT INFORMATION
  Report Type: 
  Country: None (occurrence: None)
  Receive Date: 20040203
  Receipt Date: 20030203
  Transmission Date: 20041129
  Serious: Yes (Other)
  Sender: FDA-Public Use
  Company Number: 200311889BWH

PATIENT
  Sex: Female

DRUGS (2)
  1. AVELOX [Suspect]
     Indication: BRONCHITIS CHRONIC
     Dosage: 400 MG, QD, ORAL
     Route: 048
  2. SEIZURE MEDICATIONS NOS [Concomitant]

REACTIONS (2)
  - CONVULSION [None]
  - RASH GENERALISED [None]
